FAERS Safety Report 12482504 (Version 1)
Quarter: 2016Q2

REPORT INFORMATION
  Report Type: Spontaneous
  Country: FR (occurrence: FR)
  Receive Date: 20160620
  Receipt Date: 20160620
  Transmission Date: 20160815
  Serious: Yes (Hospitalization)
  Sender: FDA-Public Use
  Company Number: FR-IPCA LABORATORIES LIMITED-IPC201505-000293

PATIENT
  Age: 50 Year
  Sex: Female
  Weight: 110 kg

DRUGS (4)
  1. TRAMADOL. [Suspect]
     Active Substance: TRAMADOL
  2. ALPRAZOLAM. [Suspect]
     Active Substance: ALPRAZOLAM
  3. ALCOHOL. [Suspect]
     Active Substance: ALCOHOL
  4. ALCOHOL. [Suspect]
     Active Substance: ALCOHOL

REACTIONS (9)
  - Ventricular tachycardia [Recovering/Resolving]
  - Respiratory arrest [Recovering/Resolving]
  - Acute kidney injury [Unknown]
  - Cardiogenic shock [Recovering/Resolving]
  - Acute hepatic failure [Unknown]
  - Intentional overdose [Unknown]
  - Mydriasis [Recovering/Resolving]
  - Toxicity to various agents [Unknown]
  - Epilepsy [Recovering/Resolving]
